FAERS Safety Report 24547559 (Version 1)
Quarter: 2024Q4

REPORT INFORMATION
  Report Type: Spontaneous
  Country: US (occurrence: US)
  Receive Date: 20241025
  Receipt Date: 20241025
  Transmission Date: 20250115
  Serious: No
  Sender: ALEXION PHARMACEUTICALS
  Company Number: US-AstraZeneca-2024A205843

PATIENT

DRUGS (8)
  1. TEZSPIRE [Suspect]
     Active Substance: TEZEPELUMAB-EKKO
     Indication: Asthma
     Dosage: UNK
  2. TEZSPIRE [Suspect]
     Active Substance: TEZEPELUMAB-EKKO
     Dosage: UNK
  3. TEZSPIRE [Suspect]
     Active Substance: TEZEPELUMAB-EKKO
     Dosage: UNK
  4. TEZSPIRE [Suspect]
     Active Substance: TEZEPELUMAB-EKKO
     Dosage: UNK
  5. TEZSPIRE [Suspect]
     Active Substance: TEZEPELUMAB-EKKO
     Dosage: UNK
  6. TEZSPIRE [Suspect]
     Active Substance: TEZEPELUMAB-EKKO
     Dosage: UNK
  7. TEZSPIRE [Suspect]
     Active Substance: TEZEPELUMAB-EKKO
     Dosage: UNK
  8. TEZSPIRE [Suspect]
     Active Substance: TEZEPELUMAB-EKKO
     Dosage: UNK

REACTIONS (1)
  - Back pain [Unknown]
